FAERS Safety Report 13735175 (Version 1)
Quarter: 2017Q3

REPORT INFORMATION
  Report Type: Spontaneous
  Country: NO (occurrence: NO)
  Receive Date: 20170710
  Receipt Date: 20170710
  Transmission Date: 20171127
  Serious: Yes (Hospitalization)
  Sender: FDA-Public Use
  Company Number: NO-ASTRAZENECA-2017SE69063

PATIENT
  Age: 52 Year
  Sex: Male

DRUGS (9)
  1. LACTULOSE. [Concomitant]
     Active Substance: LACTULOSE
     Dosage: 15.0ML UNKNOWN
  2. NYCOPLUS B-TOTAL [Concomitant]
     Route: 048
  3. XANOR [Concomitant]
     Active Substance: ALPRAZOLAM
     Dosage: 2.0MG UNKNOWN
  4. TRAMADOL. [Concomitant]
     Active Substance: TRAMADOL
     Dosage: ONLY TAKEN IF NECESSARY 50 MG THREE TIMES A DAY
  5. CONCERTA [Concomitant]
     Active Substance: METHYLPHENIDATE HYDROCHLORIDE
     Dosage: 36 MILLIGRAMS IN THE MORNING AND 18 MILLIGRAMS IN THE AFTERNOON.
  6. SEROQUEL [Suspect]
     Active Substance: QUETIAPINE FUMARATE
     Indication: ANXIETY
     Dosage: 100.0MG UNKNOWN
     Route: 048
  7. PARACET [Concomitant]
     Active Substance: ACETAMINOPHEN
  8. NEXIUM [Concomitant]
     Active Substance: ESOMEPRAZOLE MAGNESIUM
     Dosage: 40.0MG UNKNOWN
  9. SEROQUEL [Suspect]
     Active Substance: QUETIAPINE FUMARATE
     Indication: ANXIETY
     Dosage: 75.0MG UNKNOWN
     Route: 048

REACTIONS (2)
  - Mucosal dryness [Recovering/Resolving]
  - Hypertriglyceridaemia [Recovering/Resolving]
